FAERS Safety Report 18646452 (Version 2)
Quarter: 2021Q1

REPORT INFORMATION
  Report Type: Other
  Country: US (occurrence: US)
  Receive Date: 20201221
  Receipt Date: 20210320
  Transmission Date: 20210419
  Serious: No
  Sender: FDA-Public Use
  Company Number: US-ACORDA-ACO_166505_2020

PATIENT
  Sex: Male

DRUGS (5)
  1. INBRIJA [Suspect]
     Active Substance: LEVODOPA
     Indication: ON AND OFF PHENOMENON
  2. INBRIJA [Suspect]
     Active Substance: LEVODOPA
     Indication: PARKINSON^S DISEASE
     Dosage: 84 MILLIGRAM, PRN, NOT TO EXCEED 5 DOSES A DAY
     Dates: start: 20200909
  3. RASAGILINE. [Concomitant]
     Active Substance: RASAGILINE
     Indication: PRODUCT USED FOR UNKNOWN INDICATION
     Dosage: 5 MILLIGRAM, BID
     Route: 065
  4. RYTARY [Concomitant]
     Active Substance: CARBIDOPA\LEVODOPA
     Indication: PRODUCT USED FOR UNKNOWN INDICATION
     Dosage: 61.25/245 MG 1 PILL 8 TIMES/DAY
     Route: 065
  5. AMANTADINE. [Concomitant]
     Active Substance: AMANTADINE HYDROCHLORIDE
     Indication: PRODUCT USED FOR UNKNOWN INDICATION
     Dosage: 100 MILLIGRAM, TID
     Route: 065

REACTIONS (9)
  - Choking [Unknown]
  - Product residue present [Unknown]
  - Adverse event [Not Recovered/Not Resolved]
  - Cough [Unknown]
  - Somnolence [Unknown]
  - Fatigue [Unknown]
  - Gastrointestinal disorder [Unknown]
  - Influenza [Not Recovered/Not Resolved]
  - Device difficult to use [Unknown]
